FAERS Safety Report 5170252-1 (Version None)
Quarter: 2006Q4

REPORT INFORMATION
  Report Type: 
  Country: None (occurrence: None)
  Receive Date: 20061204
  Receipt Date: 20061121
  Transmission Date: 20070319
  Serious: Yes (Hospitalization)
  Sender: FDA-Public Use
  Company Number: RENA-12026

PATIENT
  Age: 79 Year
  Sex: Male

DRUGS (4)
  1. PHOSBLOCK 250 MG TABLETS [Suspect]
     Indication: HYPERPHOSPHATAEMIA
     Dosage: 2.25 G QD PO
     Route: 048
     Dates: start: 20060701
  2. PHOSBLOCK 250 MG TABLETS [Suspect]
     Indication: HYPERPHOSPHATAEMIA
     Dosage: 3.75 G QD PO
     Route: 048
     Dates: start: 20060601, end: 20060701
  3. PHOSBLOCK 250 MG TABLETS [Suspect]
     Indication: HYPERPHOSPHATAEMIA
     Dosage: 4.5 G QD PO
     Route: 048
     Dates: start: 20050601, end: 20060601
  4. CALCIUM POLYSTYRENE SULFONATE [Concomitant]

REACTIONS (5)
  - DIARRHOEA [None]
  - LARGE INTESTINE PERFORATION [None]
  - MALAISE [None]
  - NAUSEA [None]
  - PERITONITIS [None]
